FAERS Safety Report 4945022-7 (Version None)
Quarter: 2006Q1

REPORT INFORMATION
  Report Type: 
  Country: None (occurrence: None)
  Receive Date: 20060117
  Receipt Date: 20050707
  Transmission Date: 20060701
  Serious: Yes (Other)
  Sender: FDA-Public Use
  Company Number: A03200502075

PATIENT
  Sex: Male
  Weight: 112.47 kg

DRUGS (1)
  1. PLAVIX [Suspect]
     Dosage: ORAL; A FEW YEARS
     Route: 048

REACTIONS (1)
  - ATRIAL FIBRILLATION [None]
